FAERS Safety Report 8011362-0 (Version None)
Quarter: 2011Q4

REPORT INFORMATION
  Report Type: 
  Country: None (occurrence: None)
  Receive Date: 20111228
  Receipt Date: 20111228
  Transmission Date: 20120403
  Serious: Yes (Death, Life-Threatening, Hospitalization)
  Sender: FDA-Public Use
  Company Number: None

PATIENT
  Age: 88 Year
  Sex: Male
  Weight: 74.842 kg

DRUGS (1)
  1. ARICEPT [Suspect]
     Indication: DEMENTIA
     Dosage: 1 TABLET
     Dates: start: 20110430, end: 20110501

REACTIONS (6)
  - SKIN REACTION [None]
  - VOMITING [None]
  - ASPIRATION [None]
  - MUSCLE SPASMS [None]
  - PANCREATITIS [None]
  - PNEUMONIA [None]
